FAERS Safety Report 6983952-5 (Version None)
Quarter: 2010Q3

REPORT INFORMATION
  Report Type: 
  Country: None (occurrence: None)
  Receive Date: 20100914
  Receipt Date: 20090429
  Transmission Date: 20110219
  Serious: Yes (Other)
  Sender: FDA-Public Use
  Company Number: US-WYE-H09152009

PATIENT
  Sex: Male

DRUGS (1)
  1. MYLOTARG [Suspect]
     Dosage: ONE DOSE
     Route: 065
     Dates: start: 20090101

REACTIONS (1)
  - PLATELET COUNT DECREASED [None]
